FAERS Safety Report 8563143-7 (Version None)
Quarter: 2012Q3

REPORT INFORMATION
  Report Type: 
  Country: None (occurrence: None)
  Receive Date: 20120802
  Receipt Date: 20120723
  Transmission Date: 20120928
  Serious: No
  Sender: FDA-Public Use
  Company Number: US-AMGEN-USASP2012042886

PATIENT
  Age: 69 Year
  Sex: Female

DRUGS (1)
  1. ENBREL [Suspect]
     Indication: PSORIASIS
     Dosage: 50 MG, 2 TIMES/WK
     Dates: start: 20120619

REACTIONS (9)
  - JOINT STIFFNESS [None]
  - HAEMORRHAGE [None]
  - GAIT DISTURBANCE [None]
  - BACK PAIN [None]
  - CONTUSION [None]
  - PAIN IN EXTREMITY [None]
  - MUSCULOSKELETAL STIFFNESS [None]
  - DRUG EFFECT DECREASED [None]
  - ARTHRALGIA [None]
